FAERS Safety Report 6814232-6 (Version None)
Quarter: 2010Q2

REPORT INFORMATION
  Report Type: 
  Country: None (occurrence: None)
  Receive Date: 20100629
  Receipt Date: 20100614
  Transmission Date: 20101027
  Serious: Yes (Other)
  Sender: FDA-Public Use
  Company Number: JPI-P-011043

PATIENT
  Age: 38 Year
  Sex: Female

DRUGS (5)
  1. XYREM [Suspect]
     Indication: NARCOLEPSY
     Dosage: 4.5 GM (2.25 GM, 2 IN 1 D), ORAL; 9 GM (4.5 GM, 2 IN 1 D), ORAL
     Route: 048
     Dates: start: 20091218
  2. ALPRAZOLAM [Suspect]
     Indication: DRUG ABUSE
  3. PREGABALIN [Suspect]
     Indication: DRUG ABUSE
  4. CARISOPRODOL [Suspect]
     Indication: DRUG ABUSE
  5. ALCOHOL [Suspect]
     Indication: ALCOHOL ABUSE

REACTIONS (3)
  - ALCOHOL ABUSE [None]
  - CLONUS [None]
  - LOSS OF CONSCIOUSNESS [None]
